FAERS Safety Report 25768593 (Version 1)
Quarter: 2025Q3

REPORT INFORMATION
  Report Type: Spontaneous
  Country: EU (occurrence: EU)
  Receive Date: 20250905
  Receipt Date: 20250905
  Transmission Date: 20251021
  Serious: Yes (Life-Threatening, Hospitalization, Other)
  Sender: MYLAN
  Company Number: EU-Merck Healthcare KGaA-2025023577

PATIENT
  Age: 72 Year
  Sex: Male

DRUGS (1)
  1. METFORMIN [Suspect]
     Active Substance: METFORMIN HYDROCHLORIDE
     Indication: Type 2 diabetes mellitus

REACTIONS (5)
  - Acute kidney injury [Recovered/Resolved]
  - Hypoglycaemia [Unknown]
  - Lactic acidosis [Recovered/Resolved]
  - Urinary tract infection [Unknown]
  - Influenza A virus test positive [Unknown]
